FAERS Safety Report 18520244 (Version 1)
Quarter: 2020Q4

REPORT INFORMATION
  Report Type: Other
  Country: US (occurrence: US)
  Receive Date: 20201119
  Receipt Date: 20201119
  Transmission Date: 20210114
  Serious: Yes (Other)
  Sender: FDA-Public Use
  Company Number: US-ROCHE-2714544

PATIENT
  Sex: Female
  Weight: 92.16 kg

DRUGS (9)
  1. CLONAZEPAM. [Suspect]
     Active Substance: CLONAZEPAM
     Indication: RESTLESS LEGS SYNDROME
     Route: 048
  2. ENALAPRIL [Concomitant]
     Active Substance: ENALAPRIL
     Indication: HYPERTENSION
  3. XOLAIR [Suspect]
     Active Substance: OMALIZUMAB
     Indication: URTICARIA
     Dosage: ONE SHOT IN EACH ARM;
     Route: 058
  4. ALBUTEROL. [Concomitant]
     Active Substance: ALBUTEROL
     Indication: PNEUMONIA BACTERIAL
     Route: 055
     Dates: start: 201805
  5. SUCRALFATE. [Concomitant]
     Active Substance: SUCRALFATE
  6. OMEPRAZOLE. [Concomitant]
     Active Substance: OMEPRAZOLE
     Indication: GASTROOESOPHAGEAL REFLUX DISEASE
  7. CORTISONE [Concomitant]
     Active Substance: CORTISONE
  8. ONDANSETRON [Concomitant]
     Active Substance: ONDANSETRON
     Indication: NAUSEA
  9. VITAMIN C [Concomitant]
     Active Substance: ASCORBIC ACID

REACTIONS (8)
  - Intentional product use issue [Unknown]
  - Hypertension [Not Recovered/Not Resolved]
  - Off label use [Unknown]
  - Pneumonia bacterial [Recovered/Resolved with Sequelae]
  - Pernicious anaemia [Not Recovered/Not Resolved]
  - Small fibre neuropathy [Not Recovered/Not Resolved]
  - Anaphylactic reaction [Recovered/Resolved]
  - Autonomic neuropathy [Not Recovered/Not Resolved]
